FAERS Safety Report 16099910 (Version 1)
Quarter: 2019Q2

REPORT INFORMATION
  Report Type: Spontaneous
  Country: US (occurrence: US)
  Receive Date: 20190320
  Receipt Date: 20190320
  Transmission Date: 20190711
  Serious: No
  Sender: FDA-Public Use
  Company Number: None

PATIENT
  Age: 39 Year
  Sex: Female
  Weight: 75.15 kg

DRUGS (1)
  1. RHOFADE [Suspect]
     Active Substance: OXYMETAZOLINE HYDROCHLORIDE
     Indication: ROSACEA
     Dosage: TOPICAL; 1 PEA SIZE; DAILY?
     Route: 061
     Dates: start: 20190305, end: 20190315

REACTIONS (6)
  - Pruritus [None]
  - Erythema [None]
  - Hot flush [None]
  - Rosacea [None]
  - Swelling [None]
  - Rash [None]

NARRATIVE: CASE EVENT DATE: 20190313
